FAERS Safety Report 9371793 (Version 1)
Quarter: 2013Q2

REPORT INFORMATION
  Report Type: Spontaneous
  Country: US (occurrence: None)
  Receive Date: 20130625
  Receipt Date: 20130625
  Transmission Date: 20140414
  Serious: Yes (Hospitalization)
  Sender: FDA-Public Use
  Company Number: AMLO20130017

PATIENT
  Age: 19 Year
  Sex: Female

DRUGS (1)
  1. AMLODIPINE BESYLATE [Suspect]
     Indication: INTENTIONAL OVERDOSE
     Route: 048

REACTIONS (7)
  - Blood pressure decreased [None]
  - Sinus tachycardia [None]
  - Hyperglycaemia [None]
  - Metabolic acidosis [None]
  - Hypotension [None]
  - Angioedema [None]
  - Overdose [None]
